FAERS Safety Report 5016837-4 (Version None)
Quarter: 2006Q2

REPORT INFORMATION
  Report Type: 
  Country: None (occurrence: None)
  Receive Date: 20060419
  Receipt Date: 20060110
  Transmission Date: 20061013
  Serious: No
  Sender: FDA-Public Use
  Company Number: US200601001381

PATIENT
  Sex: Male

DRUGS (3)
  1. ALIMTA [Suspect]
     Indication: BLADDER CANCER
  2. FOLIC ACID [Concomitant]
  3. CYANOCOBALAMIN [Concomitant]

REACTIONS (1)
  - INFLAMMATION [None]
